FAERS Safety Report 14798530 (Version 1)
Quarter: 2018Q2

REPORT INFORMATION
  Report Type: Spontaneous
  Country: PL (occurrence: PL)
  Receive Date: 20180424
  Receipt Date: 20180424
  Transmission Date: 20180711
  Serious: Yes (Other)
  Sender: FDA-Public Use
  Company Number: PL-TEVA-2018-PL-885092

PATIENT
  Sex: Male

DRUGS (5)
  1. THIOCODIN (CODEINE PHOSPHATE\SULFOGAIACOL) [Suspect]
     Active Substance: CODEINE PHOSPHATE\SULFOGAIACOL
     Dosage: 1 DOSAGE TEXT = CODEINE + SULFOGLUACOL
     Route: 065
  2. DEXTROMETHORPHAN [Suspect]
     Active Substance: DEXTROMETHORPHAN
     Route: 065
  3. THIOCODIN (CODEINE PHOSPHATE\SULFOGAIACOL) [Suspect]
     Active Substance: CODEINE PHOSPHATE\SULFOGAIACOL
     Dosage: 1 DOSAGE TEXT = CODEINE + SULFOGLUACOL
  4. AVIOMARIN [Suspect]
     Active Substance: DIMENHYDRINATE
     Route: 065
  5. ESCITALOPRAM [Suspect]
     Active Substance: ESCITALOPRAM OXALATE
     Route: 065

REACTIONS (5)
  - Miosis [Unknown]
  - Feeling abnormal [Unknown]
  - Laziness [Unknown]
  - Drug abuse [Unknown]
  - Head titubation [Unknown]
